FAERS Safety Report 13940451 (Version 1)
Quarter: 2017Q3

REPORT INFORMATION
  Report Type: Spontaneous
  Country: FR (occurrence: FR)
  Receive Date: 20170906
  Receipt Date: 20170906
  Transmission Date: 20171127
  Serious: Yes (Other)
  Sender: FDA-Public Use
  Company Number: FR-MYLANLABS-2017M1054609

PATIENT
  Sex: Male

DRUGS (5)
  1. ETOPOSIDE. [Concomitant]
     Active Substance: ETOPOSIDE
     Indication: CYTOREDUCTIVE SURGERY
     Dosage: 150 MG/M2 ON DAY 1-2
     Route: 065
  2. SORAFENIB [Concomitant]
     Active Substance: SORAFENIB
     Indication: ACUTE MYELOID LEUKAEMIA
     Route: 065
     Dates: start: 201207, end: 201208
  3. TRETINOIN. [Suspect]
     Active Substance: TRETINOIN
     Dosage: 45MG/M2 PER DAY ON DAYS 1 TO 14
     Route: 065
     Dates: start: 201210, end: 201306
  4. SORAFENIB [Concomitant]
     Active Substance: SORAFENIB
     Dosage: 800MG/DAY
     Route: 065
     Dates: start: 201210
  5. TRETINOIN. [Suspect]
     Active Substance: TRETINOIN
     Indication: ACUTE MYELOID LEUKAEMIA
     Dosage: 45MG/M2 PER DAY ON DAYS 1 TO 14
     Route: 065
     Dates: start: 201207, end: 201208

REACTIONS (1)
  - Hepatotoxicity [Unknown]
